FAERS Safety Report 25621377 (Version 1)
Quarter: 2025Q3

REPORT INFORMATION
  Report Type: Spontaneous
  Country: EU (occurrence: EU)
  Receive Date: 20250730
  Receipt Date: 20250730
  Transmission Date: 20251021
  Serious: Yes (Other)
  Sender: ALEXION PHARMACEUTICALS
  Company Number: None

PATIENT
  Age: 74 Year
  Sex: Male
  Weight: 97 kg

DRUGS (1)
  1. XIGDUO XR [Suspect]
     Active Substance: DAPAGLIFLOZIN PROPANEDIOL\METFORMIN HYDROCHLORIDE
     Indication: Diabetes mellitus
     Dates: start: 20241114, end: 20250314

REACTIONS (8)
  - Balanoposthitis infective [Recovered/Resolved]
  - Thirst [Recovered/Resolved]
  - Nocturia [Recovered/Resolved]
  - Decreased appetite [Recovered/Resolved]
  - Confusional state [Recovered/Resolved]
  - Mobility decreased [Recovered/Resolved]
  - Lymphadenitis [Not Recovered/Not Resolved]
  - Diabetes mellitus [Recovering/Resolving]

NARRATIVE: CASE EVENT DATE: 20250310
